FAERS Safety Report 25014233 (Version 2)
Quarter: 2025Q1

REPORT INFORMATION
  Report Type: Spontaneous
  Country: US (occurrence: US)
  Receive Date: 20250226
  Receipt Date: 20250228
  Transmission Date: 20250409
  Serious: No
  Sender: ROCHE
  Company Number: US-ROCHE-10000209986

PATIENT
  Age: 53 Year
  Sex: Female
  Weight: 68.03 kg

DRUGS (2)
  1. OCREVUS [Suspect]
     Active Substance: OCRELIZUMAB
     Indication: Multiple sclerosis
     Route: 042
     Dates: start: 2024
  2. LISINOPRIL [Concomitant]
     Active Substance: LISINOPRIL
     Indication: Hypertension
     Dosage: IN MORNING
     Route: 048
     Dates: start: 2017

REACTIONS (7)
  - Dizziness [Recovered/Resolved]
  - Procedural dizziness [Recovered/Resolved]
  - Burning sensation [Not Recovered/Not Resolved]
  - Headache [Not Recovered/Not Resolved]
  - Paranasal sinus discomfort [Unknown]
  - Sinus congestion [Unknown]
  - Chills [Unknown]

NARRATIVE: CASE EVENT DATE: 20250213
